FAERS Safety Report 19399207 (Version 2)
Quarter: 2021Q2

REPORT INFORMATION
  Report Type: Spontaneous
  Country: HR (occurrence: HR)
  Receive Date: 20210610
  Receipt Date: 20210614
  Transmission Date: 20210717
  Serious: Yes (Life-Threatening, Hospitalization)
  Sender: FDA-Public Use
  Company Number: HR-MYLANLABS-2021M1033555

PATIENT
  Age: 83 Year
  Sex: Male
  Weight: 78 kg

DRUGS (5)
  1. TOMIDE [Concomitant]
     Dosage: 5 MILLIGRAM, QD
     Route: 048
  2. CONCOR COR [Concomitant]
     Active Substance: BISOPROLOL FUMARATE
     Dosage: 1.25 MILLIGRAM, QD
     Route: 048
  3. TRITAZIDE [Concomitant]
     Active Substance: HYDROCHLOROTHIAZIDE\RAMIPRIL
     Dosage: 1 DOSAGE FORM
     Route: 048
  4. AMLOPINE [Concomitant]
     Active Substance: AMLODIPINE BESYLATE
     Dosage: UNK
     Route: 048
  5. EVEROLIMUS. [Suspect]
     Active Substance: EVEROLIMUS
     Indication: NEUROENDOCRINE TUMOUR
     Dosage: 5 MILLIGRAM, QD
     Route: 048
     Dates: start: 20201009, end: 20201104

REACTIONS (5)
  - Atrioventricular block complete [Recovering/Resolving]
  - Syncope [Recovering/Resolving]
  - Heart rate decreased [Recovering/Resolving]
  - Bradycardia [Recovering/Resolving]
  - Dyspnoea [Recovering/Resolving]

NARRATIVE: CASE EVENT DATE: 20201104
